FAERS Safety Report 18192905 (Version 1)
Quarter: 2020Q3

REPORT INFORMATION
  Report Type: Spontaneous
  Country: US (occurrence: US)
  Receive Date: 20200825
  Receipt Date: 20200825
  Transmission Date: 20201103
  Serious: Yes (Other)
  Sender: FDA-Public Use
  Company Number: US-BEH-2020121685

PATIENT
  Age: 51 Year
  Sex: Female

DRUGS (21)
  1. HIZENTRA [Suspect]
     Active Substance: HUMAN IMMUNOGLOBULIN G
     Indication: ANKYLOSING SPONDYLITIS
     Dosage: 20 GRAM, QW
     Route: 058
     Dates: start: 202001
  2. NORTRIPTYLINE HCL [Concomitant]
     Active Substance: NORTRIPTYLINE HYDROCHLORIDE
     Route: 065
  3. BACLOFEN. [Concomitant]
     Active Substance: BACLOFEN
     Route: 065
  4. SUMATRIPTAN SUCCINATE. [Concomitant]
     Active Substance: SUMATRIPTAN SUCCINATE
     Route: 065
  5. HIZENTRA [Suspect]
     Active Substance: HUMAN IMMUNOGLOBULIN G
     Dosage: 18 GRAM, QW, 3 DAYS AFTER
     Route: 058
     Dates: start: 202001
  6. VENTOLIN HFA [Concomitant]
     Active Substance: ALBUTEROL SULFATE
     Route: 065
  7. EPINEPHRINE. [Concomitant]
     Active Substance: EPINEPHRINE
     Route: 065
  8. LIOTHYRONINE SODIUM. [Concomitant]
     Active Substance: LIOTHYRONINE SODIUM
     Route: 065
  9. LEVOTHYROXINE SODIUM. [Concomitant]
     Active Substance: LEVOTHYROXINE SODIUM
     Route: 065
  10. MESTINON [Concomitant]
     Active Substance: PYRIDOSTIGMINE BROMIDE
     Route: 065
  11. SUBOXONE [Concomitant]
     Active Substance: BUPRENORPHINE HYDROCHLORIDE\NALOXONE HYDROCHLORIDE
     Route: 065
  12. MONTELUKAST SODIUM. [Concomitant]
     Active Substance: MONTELUKAST SODIUM
     Route: 065
  13. ONDANSETRON [Concomitant]
     Active Substance: ONDANSETRON
     Route: 065
  14. ACETAMINOPHEN;CODEINE [Concomitant]
     Active Substance: ACETAMINOPHEN\CODEINE PHOSPHATE
     Route: 065
  15. ESTRADIOL. [Concomitant]
     Active Substance: ESTRADIOL
     Route: 065
  16. MELOXICAM. [Concomitant]
     Active Substance: MELOXICAM
     Route: 065
  17. PRISTIQ EXTENDED?RELEASE [Concomitant]
     Active Substance: DESVENLAFAXINE SUCCINATE
     Route: 065
  18. AMITRIPTYLINE HCL [Concomitant]
     Active Substance: AMITRIPTYLINE
     Route: 065
  19. HIZENTRA [Suspect]
     Active Substance: HUMAN IMMUNOGLOBULIN G
     Dosage: UNK
     Route: 058
  20. FOLIC ACID. [Concomitant]
     Active Substance: FOLIC ACID
     Route: 065
  21. CETIRIZINE HCL [Concomitant]
     Active Substance: CETIRIZINE HYDROCHLORIDE
     Route: 065

REACTIONS (13)
  - Post concussion syndrome [Unknown]
  - Nausea [Unknown]
  - Syncope [Unknown]
  - Product dose omission issue [Unknown]
  - Dysphagia [Unknown]
  - Palpitations [Unknown]
  - Product use in unapproved indication [Unknown]
  - Craniocerebral injury [Unknown]
  - Stress [Unknown]
  - Fatigue [Unknown]
  - No adverse event [Unknown]
  - Concussion [Unknown]
  - Concussion [Unknown]

NARRATIVE: CASE EVENT DATE: 202003
